FAERS Safety Report 4759813-9 (Version None)
Quarter: 2005Q3

REPORT INFORMATION
  Report Type: 
  Country: None (occurrence: None)
  Receive Date: 20050831
  Receipt Date: 20050831
  Transmission Date: 20060218
  Serious: Yes (Other)
  Sender: FDA-Public Use
  Company Number: None

PATIENT
  Age: 64 Year
  Sex: Male
  Weight: 97.5234 kg

DRUGS (1)
  1. LUNESTA [Suspect]
     Dosage: 5MG  DAILY PO
     Route: 048
     Dates: start: 20050620, end: 20050627

REACTIONS (2)
  - ABNORMAL DREAMS [None]
  - DRUG EFFECT DECREASED [None]
